FAERS Safety Report 21844351 (Version 1)
Quarter: 2023Q1

REPORT INFORMATION
  Report Type: Spontaneous
  Country: BR (occurrence: BR)
  Receive Date: 20230110
  Receipt Date: 20230110
  Transmission Date: 20230418
  Serious: Yes (Other)
  Sender: FDA-Public Use
  Company Number: BR-SA-SAC20221201000038

PATIENT
  Age: 40 Year
  Sex: Female
  Weight: 54 kg

DRUGS (4)
  1. LANTUS [Suspect]
     Active Substance: INSULIN GLARGINE
     Dosage: UNK
     Dates: start: 2011
  2. DEVICE [Suspect]
     Active Substance: DEVICE
     Route: 058
  3. LOSARTAN [Concomitant]
     Active Substance: LOSARTAN
     Dosage: UNK
  4. CHOLECALCIFEROL [Concomitant]
     Active Substance: CHOLECALCIFEROL
     Dosage: UNK

REACTIONS (12)
  - Glaucoma [Unknown]
  - Injection site nodule [Unknown]
  - Lack of injection site rotation [Unknown]
  - Multiple use of single-use product [Unknown]
  - Needle issue [Unknown]
  - Fatigue [Unknown]
  - Thirst [Unknown]
  - Iris disorder [Unknown]
  - Keratitis [Unknown]
  - Obstruction [Unknown]
  - Glycosylated haemoglobin abnormal [Unknown]
  - Diabetic retinopathy [Unknown]
